FAERS Safety Report 6348612-2 (Version None)
Quarter: 2009Q3

REPORT INFORMATION
  Report Type: 
  Country: None (occurrence: None)
  Receive Date: 20090911
  Receipt Date: 20071009
  Transmission Date: 20100115
  Serious: Yes (Other)
  Sender: FDA-Public Use
  Company Number: US-ASTRAZENECA-2006UW22881

PATIENT
  Age: 197 Month
  Sex: Female
  Weight: 64.9 kg

DRUGS (13)
  1. SEROQUEL [Suspect]
     Indication: BIPOLAR DISORDER
     Dosage: 25MG - 100MG, AT NIGHT
     Route: 048
     Dates: start: 20020210
  2. SEROQUEL [Suspect]
     Indication: DEPRESSION
     Dosage: 25MG - 100MG, AT NIGHT
     Route: 048
     Dates: start: 20020210
  3. SEROQUEL [Suspect]
     Indication: ANXIETY
     Dosage: 25MG - 100MG, AT NIGHT
     Route: 048
     Dates: start: 20020210
  4. SEROQUEL [Suspect]
     Route: 048
     Dates: start: 20030101, end: 20050101
  5. SEROQUEL [Suspect]
     Route: 048
     Dates: start: 20030101, end: 20050101
  6. SEROQUEL [Suspect]
     Route: 048
     Dates: start: 20030101, end: 20050101
  7. TRAZODONE HCL [Concomitant]
     Route: 048
     Dates: start: 20020307
  8. ZOLOFT [Concomitant]
     Route: 048
     Dates: start: 20011109
  9. ALBUTEROL [Concomitant]
     Indication: DYSPNOEA
     Dosage: TWO PUFFS EVERY 4 TO 6 HOURS AS REQUIRED
     Route: 045
     Dates: start: 20011109
  10. SYNTHROID [Concomitant]
     Route: 048
     Dates: start: 20020307
  11. DARVOCET-N 100 [Concomitant]
     Dosage: 1 TO 2 EVERY 4-6 HOURS AS REQUIRED
     Route: 048
     Dates: start: 20050223
  12. WELLBUTRIN [Concomitant]
     Route: 048
     Dates: start: 20050112
  13. TRILEPTAL [Concomitant]
     Route: 048
     Dates: start: 20050112

REACTIONS (3)
  - BLOOD TRIGLYCERIDES INCREASED [None]
  - DIABETES MELLITUS [None]
  - HYPOGLYCAEMIC SEIZURE [None]
